FAERS Safety Report 7718520-0 (Version None)
Quarter: 2011Q3

REPORT INFORMATION
  Report Type: 
  Country: None (occurrence: None)
  Receive Date: 20110830
  Receipt Date: 20110822
  Transmission Date: 20111222
  Serious: Yes (Life-Threatening)
  Sender: FDA-Public Use
  Company Number: JP-ASTRAZENECA-2011SE47086

PATIENT
  Age: 28216 Day
  Sex: Female

DRUGS (6)
  1. YOUPIS [Concomitant]
     Indication: CONSTIPATION
     Dates: start: 20110722
  2. DAI-KENCHU-TO [Concomitant]
     Indication: CONSTIPATION
     Dates: start: 20110722
  3. TPN ELECTROLYTES IN PLASTIC CONTAINER [Concomitant]
     Indication: DECREASED APPETITE
     Dates: start: 20110615
  4. VEEN-3G [Concomitant]
     Indication: DECREASED APPETITE
     Dates: start: 20110616
  5. MEROPENEM [Suspect]
     Indication: PNEUMONIA ASPIRATION
     Route: 041
     Dates: start: 20110728, end: 20110801
  6. SENNOSIDE [Concomitant]
     Indication: CONSTIPATION
     Dates: start: 20110722

REACTIONS (3)
  - THROMBOCYTOPENIA [None]
  - STAPHYLOCOCCAL INFECTION [None]
  - BLOOD CULTURE POSITIVE [None]
